FAERS Safety Report 5126862-0 (Version None)
Quarter: 2006Q3

REPORT INFORMATION
  Report Type: 
  Country: None (occurrence: None)
  Receive Date: 20060825
  Receipt Date: 20060427
  Transmission Date: 20061208
  Serious: No
  Sender: FDA-Public Use
  Company Number: 2006US002980

PATIENT
  Age: 48 Year
  Sex: Female
  Weight: 102.9 kg

DRUGS (10)
  1. ALOXI [Suspect]
     Indication: PROPHYLAXIS OF NAUSEA AND VOMITING
     Dosage: 0.25 MG,QWK, IV BOLUS
     Route: 040
     Dates: start: 20060421
  2. ALOXI [Suspect]
     Dosage: 0.25 MG, QWK, IV DRIP
     Route: 041
     Dates: end: 20060401
  3. DECADRON /00016001/(DEXAMETHASONE) [Concomitant]
  4. CALCIUM GLUCONATE [Concomitant]
  5. MAGNESIUM SULFATE [Concomitant]
  6. LEUCOVORIN /00566701/(FOLINIC ACID) [Concomitant]
  7. OXALIPLATIN [Concomitant]
  8. FLUOROURACIL [Concomitant]
  9. EMEND [Concomitant]
  10. MULTIVITAMIN /00831701/ (VITAMINS NOS) [Concomitant]

REACTIONS (2)
  - DRUG EFFECT DECREASED [None]
  - NAUSEA [None]
